FAERS Safety Report 8428243-0 (Version None)
Quarter: 2012Q2

REPORT INFORMATION
  Report Type: 
  Country: None (occurrence: None)
  Receive Date: 20120611
  Receipt Date: 20110518
  Transmission Date: 20120825
  Serious: No
  Sender: FDA-Public Use
  Company Number: US-ASTRAZENECA-2011SE30714

PATIENT
  Age: 77 Year
  Sex: Male

DRUGS (2)
  1. CLARITON D [Concomitant]
     Indication: MULTIPLE ALLERGIES
  2. PULMICORT FLEXHALER [Suspect]
     Indication: LUNG OPERATION
     Dosage: 180 MCG 2 PUFFS AT NIGHT
     Route: 055
     Dates: start: 20110517

REACTIONS (3)
  - HUNGER [None]
  - COUGH [None]
  - NAUSEA [None]
